FAERS Safety Report 23030362 (Version 1)
Quarter: 2023Q4

REPORT INFORMATION
  Report Type: Spontaneous
  Country: GB (occurrence: GB)
  Receive Date: 20231005
  Receipt Date: 20231005
  Transmission Date: 20240110
  Serious: Yes (Death)
  Sender: FDA-Public Use
  Company Number: GB-ABBVIE-5394260

PATIENT
  Sex: Female

DRUGS (3)
  1. AZACITIDINE [Suspect]
     Active Substance: AZACITIDINE
     Indication: Acute myeloid leukaemia
     Dosage: UNK
     Route: 065
  2. RASBURICASE [Suspect]
     Active Substance: RASBURICASE
     Indication: Acute myeloid leukaemia
     Dosage: UNK
     Route: 050
  3. VENETOCLAX [Suspect]
     Active Substance: VENETOCLAX
     Indication: Acute myeloid leukaemia
     Dosage: UNK
     Route: 050

REACTIONS (2)
  - Tumour lysis syndrome [Fatal]
  - Drug resistance [Unknown]
